FAERS Safety Report 4807500-0 (Version None)
Quarter: 2005Q4

REPORT INFORMATION
  Report Type: 
  Country: None (occurrence: None)
  Receive Date: 20051024
  Receipt Date: 20051013
  Transmission Date: 20060501
  Serious: Yes (Disabling)
  Sender: FDA-Public Use
  Company Number: JP-JNJFOC-20050204428

PATIENT
  Age: 29 Year
  Sex: Female

DRUGS (1)
  1. MONOFLOCET [Suspect]
     Route: 048

REACTIONS (6)
  - ABDOMINAL PAIN [None]
  - ARTHRALGIA [None]
  - HEADACHE [None]
  - MUSCLE CONTRACTURE [None]
  - MYALGIA [None]
  - TENDONITIS [None]
